FAERS Safety Report 6501229-9 (Version None)
Quarter: 2009Q4

REPORT INFORMATION
  Report Type: 
  Country: None (occurrence: None)
  Receive Date: 20091216
  Receipt Date: 20091029
  Transmission Date: 20100525
  Serious: No
  Sender: FDA-Public Use
  Company Number: A0811499A

PATIENT
  Sex: Female

DRUGS (1)
  1. COMMIT [Suspect]
     Dosage: 4MG UNKNOWN
     Route: 002

REACTIONS (2)
  - DRUG INEFFECTIVE [None]
  - PRODUCT QUALITY ISSUE [None]
